FAERS Safety Report 24103284 (Version 1)
Quarter: 2024Q3

REPORT INFORMATION
  Report Type: Spontaneous
  Country: FR (occurrence: FR)
  Receive Date: 20240717
  Receipt Date: 20240717
  Transmission Date: 20241017
  Serious: Yes (Other)
  Sender: AUROBINDO
  Company Number: FR-COOPERFR-202400355

PATIENT
  Age: 56 Year
  Sex: Male

DRUGS (10)
  1. GABAPENTIN [Suspect]
     Active Substance: GABAPENTIN
     Indication: Pain in extremity
     Dosage: 2400 MILLIGRAM, ONCE A DAY
     Route: 065
  2. GABAPENTIN [Suspect]
     Active Substance: GABAPENTIN
     Indication: Pain
  3. AMITRIPTYLINE [Suspect]
     Active Substance: AMITRIPTYLINE
     Indication: Pain in extremity
     Dosage: 50 MILLIGRAM, ONCE A DAY
     Route: 065
  4. AMITRIPTYLINE [Suspect]
     Active Substance: AMITRIPTYLINE
     Indication: Pain
  5. KETAMINE [Suspect]
     Active Substance: KETAMINE
     Indication: Pain in extremity
     Dosage: 100 MILLIGRAM, ONCE A DAY (UP TO 100MG PER DAY, CONTINUOUS INFUSION)
     Route: 065
  6. KETAMINE [Suspect]
     Active Substance: KETAMINE
     Indication: Pain
  7. MORPHINE [Suspect]
     Active Substance: MORPHINE
     Indication: Pain in extremity
     Dosage: 100 MILLIGRAM, ONCE A DAY (UP TO 100MG PER DAY)
     Route: 042
  8. MORPHINE [Suspect]
     Active Substance: MORPHINE
     Indication: Pain
  9. ROPIVACAINE [Concomitant]
     Active Substance: ROPIVACAINE
     Indication: Analgesic therapy
     Dosage: UNK (2 MG/ML, 4 ML IN TOTAL)
     Route: 053
  10. XEOMIN [Concomitant]
     Active Substance: INCOBOTULINUMTOXINA
     Indication: Pain
     Dosage: UNK (1 INJECTION OF 100 UNITS AROUND THE FEMORAL NERVE GUIDED BY SONOGRAPHY)
     Route: 053

REACTIONS (6)
  - Skin necrosis [Unknown]
  - Confusional state [Unknown]
  - Constipation [Unknown]
  - Disease progression [Unknown]
  - Nausea [Unknown]
  - Therapeutic product effect incomplete [Unknown]
